FAERS Safety Report 11861948 (Version 1)
Quarter: 2015Q4

REPORT INFORMATION
  Report Type: Spontaneous
  Country: US (occurrence: US)
  Receive Date: 20151222
  Receipt Date: 20151222
  Transmission Date: 20160305
  Serious: No
  Sender: FDA-Public Use
  Company Number: US-ROCHE-643655

PATIENT
  Age: 50 Year
  Sex: Female

DRUGS (2)
  1. PEGASYS [Suspect]
     Active Substance: PEGINTERFERON ALFA-2A
     Indication: HEPATITIS C
     Dosage: DOSEFORM; PRE-FILLED SYRINGE
     Route: 065
  2. RIBAVIRIN. [Suspect]
     Active Substance: RIBAVIRIN
     Indication: HEPATITIS C
     Route: 065

REACTIONS (11)
  - Pyrexia [Unknown]
  - Chills [Unknown]
  - Urticaria [Unknown]
  - Hypersomnia [Unknown]
  - White blood cell count decreased [Unknown]
  - Injection site reaction [Not Recovered/Not Resolved]
  - Dyskinesia [Unknown]
  - Weight decreased [Unknown]
  - Injection site rash [Unknown]
  - Alopecia [Unknown]
  - Injection site bruising [Unknown]

NARRATIVE: CASE EVENT DATE: 200908
